FAERS Safety Report 23517454 (Version 2)
Quarter: 2024Q1

REPORT INFORMATION
  Report Type: Spontaneous
  Country: US (occurrence: US)
  Receive Date: 20240213
  Receipt Date: 20240215
  Transmission Date: 20240410
  Serious: Yes (Other)
  Sender: FDA-Public Use
  Company Number: US-RECKITT BENCKISER HEALTHCARE INT LIMITED-RB-083136-2024

PATIENT
  Age: 10 Year
  Sex: Female
  Weight: 61.36 kg

DRUGS (2)
  1. CHILDRENS MUCINEX MINI-MELTS COUGH [Suspect]
     Active Substance: DEXTROMETHORPHAN HYDROBROMIDE\GUAIFENESIN
     Indication: Cough
     Dosage: 2 DOSAGE FORM, SINGLE (TWO PACKETS)
     Route: 048
     Dates: start: 20240205, end: 20240205
  2. CHILDRENS MUCINEX MINI-MELTS COUGH [Suspect]
     Active Substance: DEXTROMETHORPHAN HYDROBROMIDE\GUAIFENESIN
     Indication: Rhinorrhoea

REACTIONS (1)
  - Bell^s palsy [Recovering/Resolving]

NARRATIVE: CASE EVENT DATE: 20240205
